FAERS Safety Report 8650665 (Version 4)
Quarter: 2013Q2

REPORT INFORMATION
  Report Type: Spontaneous
  Country: US (occurrence: US)
  Receive Date: 20120705
  Receipt Date: 20130425
  Transmission Date: 20140414
  Serious: Yes (Hospitalization, Other)
  Sender: FDA-Public Use
  Company Number: US-ASTRAZENECA-2012SE42889

PATIENT
  Age: 64 Year
  Sex: Female

DRUGS (3)
  1. PULMICORT RESPULES [Suspect]
     Route: 055
  2. PULMICORT RESPULES [Suspect]
     Route: 055
  3. ALBUTEROL [Concomitant]

REACTIONS (7)
  - Carbon dioxide increased [Unknown]
  - Loss of consciousness [Unknown]
  - Respiratory disorder [Unknown]
  - Dyspnoea [Unknown]
  - Drug intolerance [Unknown]
  - Off label use [Unknown]
  - Circumstance or information capable of leading to medication error [Unknown]
